FAERS Safety Report 21242980 (Version 2)
Quarter: 2023Q2

REPORT INFORMATION
  Report Type: Report from Study
  Country: JP (occurrence: JP)
  Receive Date: 20220823
  Receipt Date: 20230410
  Transmission Date: 20230722
  Serious: Yes (Other)
  Sender: FDA-Public Use
  Company Number: JP-ASTELLAS-2022JP010885

PATIENT
  Sex: Male
  Weight: 60.6 kg

DRUGS (6)
  1. ENFORTUMAB VEDOTIN [Suspect]
     Active Substance: ENFORTUMAB VEDOTIN
     Indication: Transitional cell carcinoma
     Dosage: REFER TO NARRATIVE.
     Route: 041
     Dates: start: 20220113, end: 20220113
  2. ENFORTUMAB VEDOTIN [Suspect]
     Active Substance: ENFORTUMAB VEDOTIN
     Dosage: 1.25MG/KG (82.5 MG), UNKNOWN FREQ.
     Route: 041
     Dates: start: 20220217, end: 20220217
  3. ENFORTUMAB VEDOTIN [Suspect]
     Active Substance: ENFORTUMAB VEDOTIN
     Dosage: 1.25MG/KG (73 MG), UNKNOWN FREQ.
     Route: 041
     Dates: start: 20220224, end: 20220303
  4. ENFORTUMAB VEDOTIN [Suspect]
     Active Substance: ENFORTUMAB VEDOTIN
     Dosage: 1.25MG/KG (70 MG), UNKNOWN FREQ.
     Route: 041
     Dates: start: 20220317, end: 20220324
  5. PACLITAXEL [Suspect]
     Active Substance: PACLITAXEL
     Indication: Product used for unknown indication
     Dosage: UNK UNK, UNKNOWN FREQ.
     Route: 041
  6. DIFLUCORTOLONE VALERATE [Concomitant]
     Active Substance: DIFLUCORTOLONE VALERATE
     Indication: Rash
     Dosage: UNK UNK, UNKNOWN FREQ.
     Route: 050
     Dates: start: 20220120

REACTIONS (3)
  - Malignant neoplasm progression [Not Recovered/Not Resolved]
  - Pyelonephritis [Unknown]
  - Mucosal disorder [Unknown]
